FAERS Safety Report 7299500-9 (Version None)
Quarter: 2010Q4

REPORT INFORMATION
  Report Type: 
  Country: None (occurrence: None)
  Receive Date: 20101223
  Receipt Date: 20091214
  Transmission Date: 20110411
  Serious: Yes (Other)
  Sender: FDA-Public Use
  Company Number: 218011USA

PATIENT
  Age: 28 Year
  Sex: Female
  Weight: 90.7194 kg

DRUGS (5)
  1. PARAGARD T 380A [Suspect]
     Indication: CONTRACEPTION
     Dosage: I.U.
     Dates: end: 20090904
  2. ZOLMITRIPTAN [Concomitant]
  3. MONTELUKAST SODIUM [Concomitant]
  4. MAGNESIUM [Concomitant]
  5. CETIRIZINE HYDROCHLORIDE [Concomitant]

REACTIONS (1)
  - DEVICE DISLOCATION [None]
